FAERS Safety Report 10568180 (Version 1)
Quarter: 2014Q4

REPORT INFORMATION
  Report Type: Spontaneous
  Country: FR (occurrence: FR)
  Receive Date: 20141106
  Receipt Date: 20141106
  Transmission Date: 20150529
  Serious: Yes (Hospitalization, Other)
  Sender: FDA-Public Use
  Company Number: FR-ASTRAZENECA-2014SE82634

PATIENT
  Age: 24994 Day
  Sex: Female

DRUGS (7)
  1. CRESTOR [Suspect]
     Active Substance: ROSUVASTATIN CALCIUM
     Route: 048
  2. TEMESTA [Suspect]
     Active Substance: LORAZEPAM
     Route: 048
  3. ZESTORETIC [Suspect]
     Active Substance: HYDROCHLOROTHIAZIDE\LISINOPRIL
     Dosage: 20 MG/12.5 MG 1 DF DAILY
     Route: 048
  4. GLIMEPIRIDE. [Suspect]
     Active Substance: GLIMEPIRIDE
     Route: 048
     Dates: end: 20141019
  5. FEMARA [Suspect]
     Active Substance: LETROZOLE
     Route: 048
     Dates: start: 201106, end: 20141019
  6. ICAZ [Suspect]
     Active Substance: ISRADIPINE
     Route: 048
     Dates: end: 20141019
  7. JANUVIA [Suspect]
     Active Substance: SITAGLIPTIN PHOSPHATE
     Route: 048
     Dates: end: 20141019

REACTIONS (2)
  - Pulmonary embolism [Not Recovered/Not Resolved]
  - Deep vein thrombosis [Unknown]

NARRATIVE: CASE EVENT DATE: 20141015
